FAERS Safety Report 9613397 (Version 1)
Quarter: 2013Q4

REPORT INFORMATION
  Report Type: Spontaneous
  Country: NO (occurrence: None)
  Receive Date: 20131008
  Receipt Date: 20131008
  Transmission Date: 20140711
  Serious: Yes (Other)
  Sender: FDA-Public Use
  Company Number: LOC-01179

PATIENT
  Sex: Female

DRUGS (3)
  1. LOCOID [Suspect]
  2. DAKTACORT [Suspect]
  3. DIPROSALIC [Suspect]

REACTIONS (1)
  - International normalised ratio increased [None]
